FAERS Safety Report 7361322-8 (Version None)
Quarter: 2011Q1

REPORT INFORMATION
  Report Type: 
  Country: None (occurrence: None)
  Receive Date: 20110318
  Receipt Date: 20110316
  Transmission Date: 20110831
  Serious: Yes (Death, Hospitalization)
  Sender: FDA-Public Use
  Company Number: B0699678A

PATIENT
  Age: 76 Year
  Sex: Male
  Weight: 70.5 kg

DRUGS (7)
  1. GLUCOTROL [Concomitant]
  2. AVANDIA [Suspect]
     Dosage: 4MG PER DAY
     Route: 048
     Dates: start: 20050401
  3. NORVASC [Concomitant]
  4. POTASSIUM CHLORIDE [Concomitant]
  5. LANTUS [Concomitant]
  6. LASIX [Concomitant]
  7. LANOXIN [Concomitant]

REACTIONS (3)
  - CORONARY ARTERY DISEASE [None]
  - CEREBROVASCULAR ACCIDENT [None]
  - CARDIAC ARREST [None]
